FAERS Safety Report 12227258 (Version 2)
Quarter: 2016Q2

REPORT INFORMATION
  Report Type: Report from Study
  Country: GB (occurrence: GB)
  Receive Date: 20160331
  Receipt Date: 20160408
  Transmission Date: 20160815
  Serious: Yes (Death, Disabling)
  Sender: FDA-Public Use
  Company Number: GB-ASTRAZENECA-2016SE32556

PATIENT
  Age: 67 Year
  Sex: Male

DRUGS (5)
  1. TAMSULOSIN [Concomitant]
     Active Substance: TAMSULOSIN
     Indication: URINE FLOW DECREASED
     Route: 048
     Dates: start: 20070830
  2. ASPIRIN. [Suspect]
     Active Substance: ASPIRIN
     Indication: BARRETT^S OESOPHAGUS
     Route: 048
     Dates: start: 20050509, end: 20070907
  3. NEXIUM [Suspect]
     Active Substance: ESOMEPRAZOLE MAGNESIUM
     Indication: BARRETT^S OESOPHAGUS
     Route: 048
     Dates: start: 20050509, end: 20120730
  4. SERTRALINE [Concomitant]
     Active Substance: SERTRALINE HYDROCHLORIDE
     Indication: DEPRESSION
     Route: 048
     Dates: start: 2006
  5. OMEPRAZOLE. [Concomitant]
     Active Substance: OMEPRAZOLE
     Indication: BARRETT^S OESOPHAGUS
     Route: 048

REACTIONS (1)
  - Dementia Alzheimer^s type [Fatal]

NARRATIVE: CASE EVENT DATE: 200709
